FAERS Safety Report 13349651 (Version 3)
Quarter: 2017Q2

REPORT INFORMATION
  Report Type: Spontaneous
  Country: ES (occurrence: ES)
  Receive Date: 20170320
  Receipt Date: 20170428
  Transmission Date: 20170830
  Serious: Yes (Death, Hospitalization)
  Sender: FDA-Public Use
  Company Number: PHHY2017ES041444

PATIENT
  Sex: Female

DRUGS (2)
  1. AFINITOR [Suspect]
     Active Substance: EVEROLIMUS
     Indication: BREAST CANCER METASTATIC
     Dosage: 5 MG, UNK
     Route: 048
     Dates: start: 201610, end: 201702
  2. EXEMESTANE. [Suspect]
     Active Substance: EXEMESTANE
     Indication: BREAST CANCER METASTATIC
     Dosage: UNK
     Route: 065

REACTIONS (8)
  - Body temperature increased [Fatal]
  - Dyspnoea [Fatal]
  - Mucosal inflammation [Unknown]
  - Cough [Unknown]
  - Computerised tomogram thorax abnormal [Unknown]
  - Diarrhoea [Unknown]
  - Pleural effusion [Fatal]
  - Respiratory tract infection [Fatal]
